FAERS Safety Report 9552216 (Version 1)
Quarter: 2013Q3

REPORT INFORMATION
  Report Type: Spontaneous
  Country: JP (occurrence: JP)
  Receive Date: 20130925
  Receipt Date: 20130925
  Transmission Date: 20140515
  Serious: Yes (Other)
  Sender: FDA-Public Use
  Company Number: PHHY2013JP104677

PATIENT
  Age: 3 Hour
  Sex: Female

DRUGS (3)
  1. FENTANYL [Suspect]
     Indication: ANAESTHESIA
     Dosage: 6 UG
     Route: 042
  2. ATROPINE [Suspect]
     Indication: ANAESTHESIA
     Dosage: 0.02 MG, UNK
     Route: 042
  3. ROCURONIUM BROMIDE [Suspect]
     Indication: ANAESTHESIA
     Dosage: 2 MG, UNK
     Route: 042

REACTIONS (1)
  - Neonatal respiratory distress syndrome [Recovered/Resolved]
